FAERS Safety Report 15556996 (Version 1)
Quarter: 2018Q4

REPORT INFORMATION
  Report Type: Report from Study
  Country: US (occurrence: US)
  Receive Date: 20181026
  Receipt Date: 20181026
  Transmission Date: 20190205
  Serious: Yes (Other)
  Sender: FDA-Public Use
  Company Number: US-TEVA-2018-US-967145

PATIENT
  Age: 53 Year
  Sex: Female

DRUGS (3)
  1. COPAXONE [Suspect]
     Active Substance: GLATIRAMER ACETATE
     Route: 058
     Dates: start: 20180205, end: 20180209
  2. COPAXONE [Suspect]
     Active Substance: GLATIRAMER ACETATE
     Route: 058
     Dates: start: 20180926
  3. COPAXONE [Suspect]
     Active Substance: GLATIRAMER ACETATE
     Indication: MULTIPLE SCLEROSIS
     Route: 058
     Dates: start: 19990101, end: 20180201

REACTIONS (13)
  - Tendonitis [Unknown]
  - Pain in extremity [Recovered/Resolved]
  - Musculoskeletal stiffness [Recovered/Resolved]
  - Injection site pain [Unknown]
  - Demyelination [Unknown]
  - Injection site pain [Unknown]
  - Hypothyroidism [Unknown]
  - Osteoporosis [Unknown]
  - Injection site erythema [Unknown]
  - Injection site mass [Unknown]
  - Injection site pruritus [Unknown]
  - Cellulitis [Unknown]
  - Immune system disorder [Recovered/Resolved]

NARRATIVE: CASE EVENT DATE: 20180905
